FAERS Safety Report 15829258 (Version 1)
Quarter: 2019Q1

REPORT INFORMATION
  Report Type: Spontaneous
  Country: US (occurrence: US)
  Receive Date: 20190115
  Receipt Date: 20190115
  Transmission Date: 20190417
  Serious: No
  Sender: FDA-Public Use
  Company Number: US-COLLEGIUM PHARMACEUTICAL, INC.-US-2018DEP000479

PATIENT

DRUGS (2)
  1. NUCYNTA [Suspect]
     Active Substance: TAPENTADOL HYDROCHLORIDE
     Indication: PAIN
     Dosage: 50 MG, EVERY 4 HOURS WHEN NEEDED NOT TO EXCEED 5 TABLETS/DAY
     Route: 048
     Dates: start: 20171222, end: 20171225
  2. NUCYNTA [Suspect]
     Active Substance: TAPENTADOL HYDROCHLORIDE
     Dosage: 50 MG, EVERY 4 HOURS WHEN NEEDED NOT TO EXCEED 5 TABLETS/DAY
     Route: 048
     Dates: start: 201801

REACTIONS (2)
  - Drug ineffective [Unknown]
  - Drug dose titration not performed [Unknown]

NARRATIVE: CASE EVENT DATE: 20171222
